FAERS Safety Report 23515225 (Version 1)
Quarter: 2024Q1

REPORT INFORMATION
  Report Type: Spontaneous
  Country: JP (occurrence: JP)
  Receive Date: 20240213
  Receipt Date: 20240213
  Transmission Date: 20240410
  Serious: Yes (Other)
  Sender: FDA-Public Use
  Company Number: JP-aspen-SDZ2023JP017533AA

PATIENT
  Age: 31 Year
  Sex: Male

DRUGS (1)
  1. NELARABINE [Suspect]
     Active Substance: NELARABINE
     Indication: T-cell type acute leukaemia
     Dosage: 1500 MG/M2X3, 2 COURSES
     Route: 042

REACTIONS (2)
  - Vibration syndrome [Recovered/Resolved]
  - Sensory disturbance [Recovered/Resolved]
